FAERS Safety Report 10863364 (Version 3)
Quarter: 2015Q1

REPORT INFORMATION
  Report Type: Report from Study
  Country: DE (occurrence: DE)
  Receive Date: 20150224
  Receipt Date: 20150323
  Transmission Date: 20150721
  Serious: Yes (Hospitalization, Other)
  Sender: FDA-Public Use
  Company Number: DE-ABBVIE-15K-062-1349475-00

PATIENT
  Age: 29 Year
  Sex: Male
  Weight: 102 kg

DRUGS (9)
  1. HUMIRA [Suspect]
     Active Substance: ADALIMUMAB
     Indication: CROHN^S DISEASE
     Route: 058
     Dates: start: 200806, end: 201306
  2. HUMIRA [Suspect]
     Active Substance: ADALIMUMAB
     Dosage: WEEK 2
     Route: 058
     Dates: start: 201408, end: 201408
  3. HUMIRA [Suspect]
     Active Substance: ADALIMUMAB
     Route: 058
     Dates: start: 201502
  4. MUCOFALK [Concomitant]
     Indication: PRODUCT USED FOR UNKNOWN INDICATION
  5. NEURALGIN [Concomitant]
     Indication: MIGRAINE
  6. HUMIRA [Suspect]
     Active Substance: ADALIMUMAB
     Dosage: WEEK 0
     Route: 058
     Dates: start: 20140728, end: 20140728
  7. HUMIRA [Suspect]
     Active Substance: ADALIMUMAB
     Route: 058
     Dates: start: 201408, end: 201501
  8. MAGNESIUM [Concomitant]
     Active Substance: MAGNESIUM
     Indication: NUTRITIONAL SUPPLEMENTATION
     Dosage: 1-0-0
  9. NEUREXAN [Concomitant]
     Active Substance: HOMEOPATHICS
     Indication: PAIN
     Dosage: 1-0.1
     Route: 048

REACTIONS (4)
  - Anal fissure [Recovered/Resolved]
  - Anal fistula [Unknown]
  - Perirectal abscess [Unknown]
  - Anal fistula [Recovered/Resolved]

NARRATIVE: CASE EVENT DATE: 201405
